FAERS Safety Report 25313959 (Version 1)
Quarter: 2025Q2

REPORT INFORMATION
  Report Type: Spontaneous
  Country: US (occurrence: US)
  Receive Date: 20250514
  Receipt Date: 20250514
  Transmission Date: 20250717
  Serious: No
  Sender: ABBVIE
  Company Number: US-ABBVIE-6274112

PATIENT

DRUGS (1)
  1. ONABOTULINUMTOXINA [Suspect]
     Active Substance: ONABOTULINUMTOXINA
     Indication: Muscle spasticity
     Route: 065

REACTIONS (2)
  - Asthenia [Recovered/Resolved]
  - Dyspnoea [Recovered/Resolved]
